FAERS Safety Report 12430520 (Version 3)
Quarter: 2016Q3

REPORT INFORMATION
  Report Type: Spontaneous
  Country: US (occurrence: US)
  Receive Date: 20160602
  Receipt Date: 20160707
  Transmission Date: 20161109
  Serious: Yes (Other)
  Sender: FDA-Public Use
  Company Number: US-TEVA-664987USA

PATIENT
  Age: 42 Year
  Sex: Male

DRUGS (5)
  1. PAROXETINE. [Interacting]
     Active Substance: PAROXETINE
     Indication: EMOTIONAL DISTRESS
  2. OXAZEPAM. [Suspect]
     Active Substance: OXAZEPAM
     Route: 065
  3. BUDESONIDE. [Interacting]
     Active Substance: BUDESONIDE
     Indication: ASTHMA
     Route: 045
  4. ALCOHOL. [Interacting]
     Active Substance: ALCOHOL
  5. PAROXETINE. [Suspect]
     Active Substance: PAROXETINE
     Indication: EMOTIONAL DISTRESS
     Route: 065

REACTIONS (8)
  - Homicidal ideation [Recovered/Resolved]
  - Drug interaction [Recovered/Resolved]
  - Akathisia [Recovered/Resolved]
  - Physical assault [Recovered/Resolved]
  - Alcohol interaction [Recovered/Resolved]
  - Serotonin syndrome [Recovered/Resolved]
  - Aggression [Recovered/Resolved]
  - Toxicity to various agents [Recovered/Resolved]
